FAERS Safety Report 7725894-3 (Version None)
Quarter: 2011Q3

REPORT INFORMATION
  Report Type: 
  Country: None (occurrence: None)
  Receive Date: 20110902
  Receipt Date: 20110823
  Transmission Date: 20111222
  Serious: Yes (Other)
  Sender: FDA-Public Use
  Company Number: FR-JNJFOC-20110811088

PATIENT
  Age: 45 Year
  Sex: Female
  Weight: 51 kg

DRUGS (6)
  1. GOLIMUMAB [Suspect]
     Route: 058
     Dates: start: 20110623
  2. FOLIC ACID [Concomitant]
     Indication: RHEUMATOID ARTHRITIS
     Dosage: 20MG QS
     Route: 048
     Dates: start: 20090301
  3. GOLIMUMAB [Suspect]
     Indication: RHEUMATOID ARTHRITIS
     Route: 058
     Dates: start: 20101123
  4. METHOTREXATE [Suspect]
     Indication: RHEUMATOID ARTHRITIS
     Dosage: 20MG QS
     Route: 048
     Dates: start: 20090301
  5. CLONAZEPAM [Concomitant]
     Indication: NEURALGIA
     Route: 048
     Dates: start: 20110617, end: 20110720
  6. PREDNISOLONE [Concomitant]
     Indication: RHEUMATOID ARTHRITIS
     Route: 048
     Dates: start: 20090301

REACTIONS (1)
  - PHOTOSENSITIVITY REACTION [None]
